FAERS Safety Report 9205272 (Version 1)
Quarter: 2013Q2

REPORT INFORMATION
  Report Type: Spontaneous
  Country: US (occurrence: US)
  Receive Date: 20130402
  Receipt Date: 20130402
  Transmission Date: 20140414
  Serious: Yes (Disabling, Other)
  Sender: FDA-Public Use
  Company Number: CHPA2013US005373

PATIENT
  Sex: Female

DRUGS (1)
  1. EXCEDRIN UNKNOWN [Suspect]
     Indication: FRACTURE PAIN
     Dosage: UNK, UNK
     Route: 048

REACTIONS (5)
  - Activities of daily living impaired [Unknown]
  - Fracture [Unknown]
  - Pain [Unknown]
  - Local swelling [Unknown]
  - Off label use [Unknown]
